FAERS Safety Report 24126662 (Version 1)
Quarter: 2024Q3

REPORT INFORMATION
  Report Type: Spontaneous
  Country: NL (occurrence: NL)
  Receive Date: 20240723
  Receipt Date: 20240723
  Transmission Date: 20241016
  Serious: Yes (Life-Threatening, Hospitalization, Other)
  Sender: FRESENIUS KABI
  Company Number: None

PATIENT
  Age: 61 Year
  Sex: Female
  Weight: 63 kg

DRUGS (8)
  1. OXALIPLATIN [Suspect]
     Active Substance: OXALIPLATIN
     Indication: Endometrial cancer
     Dosage: 1 TOTAL DOSE OF 850MG
     Dates: start: 20240524
  2. PACLITAXEL solution for infusion CONC 6MG/ML / Brand name not specifie [Concomitant]
     Indication: Product used for unknown indication
     Dosage: SOLUTION FOR INFUSION, 6 MG/ML (MILLIGRAM PER MILLILITER)
  3. OXYCODON CAPSULE  5MG / Brand name not specified [Concomitant]
     Indication: Product used for unknown indication
     Dosage: CAPSULE, 5 MG (MILLIGRAM)
  4. PARACETAMOL TABLET  500MG / Brand name not specified [Concomitant]
     Indication: Product used for unknown indication
     Dosage: TABLET, 500 MG (MILLIGRAM)
  5. DULOXETINE [Concomitant]
     Active Substance: DULOXETINE
     Indication: Product used for unknown indication
     Dosage: GASTRIC RESISTANT CAPSULE, 30 MG (MILLIGRAM)
  6. TIOTROPIUM capsule for inhalation 18UG / Brand name not specified [Concomitant]
     Indication: Product used for unknown indication
     Dosage: INHALATION POWDER, 18 ?G (MICROGRAM)
  7. OMEPRAZOLE [Concomitant]
     Active Substance: OMEPRAZOLE
     Indication: Product used for unknown indication
     Dosage: GASTRIC-RESISTANT CAPSULE, 20 MG (MILLIGRAM)
  8. ATORVASTATIN [Concomitant]
     Active Substance: ATORVASTATIN
     Indication: Product used for unknown indication
     Dosage: TABLET, 40 MG (MILLIGRAM)

REACTIONS (2)
  - Ventricular fibrillation [Recovering/Resolving]
  - Cardiac arrest [Recovering/Resolving]
